FAERS Safety Report 17943664 (Version 2)
Quarter: 2020Q2

REPORT INFORMATION
  Report Type: Spontaneous
  Country: US (occurrence: US)
  Receive Date: 20200625
  Receipt Date: 20200629
  Transmission Date: 20200714
  Serious: No
  Sender: FDA-Public Use
  Company Number: US-PFIZER INC-2020245016

PATIENT
  Age: 70 Year
  Sex: Female
  Weight: 93 kg

DRUGS (1)
  1. PREMARIN [Suspect]
     Active Substance: ESTROGENS, CONJUGATED
     Dosage: UNK
     Route: 067

REACTIONS (2)
  - Vaginal disorder [Unknown]
  - Application site irritation [Unknown]
